FAERS Safety Report 8869586 (Version 1)
Quarter: 2012Q4

REPORT INFORMATION
  Report Type: 
  Country: US (occurrence: US)
  Receive Date: 20121026
  Receipt Date: 20121026
  Transmission Date: 20130627
  Serious: No
  Sender: FDA-Public Use
  Company Number: US-AMGEN-USASP2012042852

PATIENT
  Age: 2 Year
  Sex: Female
  Weight: 11.6 kg

DRUGS (3)
  1. ENBREL [Suspect]
     Indication: JUVENILE ARTHRITIS
     Dosage: 10 mg-0.4ml,  qwk
     Route: 058
     Dates: start: 20120625
  2. METHOTREXATE [Concomitant]
     Dosage: UNK
  3. PREDNISONE [Concomitant]
     Dosage: UNK

REACTIONS (1)
  - Injection site bruising [Unknown]
